FAERS Safety Report 6713032-5 (Version None)
Quarter: 2010Q2

REPORT INFORMATION
  Report Type: 
  Country: None (occurrence: None)
  Receive Date: 20100506
  Receipt Date: 20100429
  Transmission Date: 20101027
  Serious: No
  Sender: FDA-Public Use
  Company Number: US-B.I. PHARMACEUTICALS,INC./RIDGEFIELD-2010-BP-04979BP

PATIENT
  Sex: Male

DRUGS (1)
  1. ZANTAC 150 [Suspect]
     Indication: VOCAL CORD DISORDER
     Dosage: 150 MG
     Route: 048
     Dates: start: 20100426, end: 20100427

REACTIONS (1)
  - OEDEMA PERIPHERAL [None]
